FAERS Safety Report 15497650 (Version 1)
Quarter: 2018Q4

REPORT INFORMATION
  Report Type: Report from Study
  Country: None (occurrence: US)
  Receive Date: 20181015
  Receipt Date: 20181015
  Transmission Date: 20190205
  Serious: Yes (Disabling)
  Sender: FDA-Public Use
  Company Number: US-ABBVIE-17K-163-2188244-00

PATIENT
  Age: 73 Year
  Sex: Female

DRUGS (2)
  1. HUMIRA [Suspect]
     Active Substance: ADALIMUMAB
     Indication: PSORIASIS
     Route: 058
     Dates: end: 2017
  2. HUMIRA [Suspect]
     Active Substance: ADALIMUMAB
     Route: 058

REACTIONS (9)
  - Herpes zoster [Unknown]
  - Back disorder [Unknown]
  - Upper respiratory tract infection [Recovered/Resolved]
  - Muscular weakness [Not Recovered/Not Resolved]
  - Injection site bruising [Recovered/Resolved]
  - Psoriasis [Unknown]
  - Hand deformity [Unknown]
  - Nerve compression [Not Recovered/Not Resolved]
  - Herpes zoster [Recovered/Resolved]

NARRATIVE: CASE EVENT DATE: 20171206
